FAERS Safety Report 5307843-0 (Version None)
Quarter: 2007Q2

REPORT INFORMATION
  Report Type: 
  Country: None (occurrence: None)
  Receive Date: 20070419
  Receipt Date: 20070404
  Transmission Date: 20071010
  Serious: Yes (Hospitalization)
  Sender: FDA-Public Use
  Company Number: 2007PV030337

PATIENT
  Age: 71 Year
  Sex: Female
  Weight: 68.0396 kg

DRUGS (4)
  1. BYETTA [Suspect]
     Indication: DIABETES MELLITUS NON-INSULIN-DEPENDENT
     Dosage: 10 MCG; 5MCG : BID; SC
     Route: 058
     Dates: start: 20060201, end: 20070101
  2. BYETTA [Suspect]
     Indication: DIABETES MELLITUS NON-INSULIN-DEPENDENT
     Dosage: 10 MCG; 5MCG : BID; SC
     Route: 058
     Dates: start: 20070101
  3. GLUCOPHAGE [Concomitant]
  4. PROTONIX [Concomitant]

REACTIONS (2)
  - BLOOD GLUCOSE INCREASED [None]
  - STAPHYLOCOCCAL INFECTION [None]
